FAERS Safety Report 5451779-1 (Version None)
Quarter: 2007Q3

REPORT INFORMATION
  Report Type: 
  Country: None (occurrence: None)
  Receive Date: 20070912
  Receipt Date: 20070904
  Transmission Date: 20080115
  Serious: Yes (Hospitalization)
  Sender: FDA-Public Use
  Company Number: 028-C5013-07071631

PATIENT
  Age: 47 Year
  Sex: Male
  Weight: 72 kg

DRUGS (19)
  1. CC-5013 (LENALIDOMIDE) (CAPSULES) [Suspect]
     Indication: MULTIPLE MYELOMA
     Dosage: 25 MG, DAILY, ORAL
     Route: 048
     Dates: start: 20060613, end: 20070423
  2. DEXAMETHASONE TAB [Suspect]
     Indication: MULTIPLE MYELOMA
     Dosage: 40 MG, DAYS 1-4, 9-12, AND 17-20,
     Dates: start: 20060613
  3. DIGOXIN [Concomitant]
  4. TAZOCIN (PIP/TAZO) [Concomitant]
  5. VANCOMYCIN [Concomitant]
  6. HYDROMORPHONE HCL [Concomitant]
  7. FLUCONAZOLE [Concomitant]
  8. CASPOFUNGIN (CASPOFUNGIN) [Concomitant]
  9. DALTEPARIN SODIUM [Concomitant]
  10. EPREX [Concomitant]
  11. FUROSEMIDE [Concomitant]
  12. NEUPOGEN [Concomitant]
  13. AMIODARONE HCL [Concomitant]
  14. METOPROLOL TARTRATE [Concomitant]
  15. OMEPRAZOLE [Concomitant]
  16. POTASSIUM CHLORIDE [Concomitant]
  17. PAROXETINE [Concomitant]
  18. DEXTROSE [Concomitant]
  19. NACL (SODIUM CHLORIDE) [Concomitant]

REACTIONS (9)
  - ANAEMIA [None]
  - ATRIAL FIBRILLATION [None]
  - ENDOPHTHALMITIS [None]
  - EYE INFECTION INTRAOCULAR [None]
  - FEBRILE NEUTROPENIA [None]
  - FUNGAL INFECTION [None]
  - RECTAL ABSCESS [None]
  - SEPSIS [None]
  - THROMBOCYTOPENIA [None]
